FAERS Safety Report 16667671 (Version 1)
Quarter: 2019Q3

REPORT INFORMATION
  Report Type: Spontaneous
  Country: FR (occurrence: FR)
  Receive Date: 20190805
  Receipt Date: 20190805
  Transmission Date: 20191004
  Serious: Yes (Death)
  Sender: FDA-Public Use
  Company Number: FR-PFIZER INC-2019329559

PATIENT
  Age: 66 Year
  Sex: Female

DRUGS (3)
  1. BISOPROLOL FUMARATE. [Suspect]
     Active Substance: BISOPROLOL FUMARATE
     Indication: TOXICITY TO VARIOUS AGENTS
     Dosage: UNK
     Route: 048
     Dates: start: 20181223
  2. AMLODIPINE BESILATE [Suspect]
     Active Substance: AMLODIPINE BESYLATE
     Indication: TOXICITY TO VARIOUS AGENTS
     Dosage: 20 DF, UNK
     Route: 048
     Dates: start: 20181223
  3. ACEBUTOLOL HYDROCHLORIDE. [Suspect]
     Active Substance: ACEBUTOLOL HYDROCHLORIDE
     Indication: TOXICITY TO VARIOUS AGENTS
     Dosage: 60 DF, UNK
     Route: 048
     Dates: start: 20181223

REACTIONS (4)
  - Off label use [Unknown]
  - Cardiogenic shock [Fatal]
  - Toxicity to various agents [Unknown]
  - Product use in unapproved indication [Unknown]

NARRATIVE: CASE EVENT DATE: 20181223
